FAERS Safety Report 5317561-0 (Version None)
Quarter: 2007Q2

REPORT INFORMATION
  Report Type: 
  Country: None (occurrence: None)
  Receive Date: 20070507
  Receipt Date: 20070425
  Transmission Date: 20071010
  Serious: Yes (Other)
  Sender: FDA-Public Use
  Company Number: PHEH2007US06330

PATIENT
  Age: 86 Year
  Sex: Female

DRUGS (1)
  1. DIOVAN HCT [Suspect]
     Indication: HYPERTENSION
     Dosage: 160MG VAL/12.5MG  HCT, QD
     Dates: start: 20070101

REACTIONS (7)
  - ARTHRALGIA [None]
  - ARTHRITIS [None]
  - CONDITION AGGRAVATED [None]
  - ERYTHEMA [None]
  - JOINT SWELLING [None]
  - NECK PAIN [None]
  - POOR PERIPHERAL CIRCULATION [None]
